FAERS Safety Report 18485473 (Version 2)
Quarter: 2020Q4

REPORT INFORMATION
  Report Type: Spontaneous
  Country: SI (occurrence: SI)
  Receive Date: 20201110
  Receipt Date: 20201124
  Transmission Date: 20210114
  Serious: Yes (Death, Hospitalization, Other)
  Sender: FDA-Public Use
  Company Number: SI-SA-2020SA309023

PATIENT

DRUGS (1)
  1. FABRAZYME [Suspect]
     Active Substance: AGALSIDASE BETA
     Indication: FABRY^S DISEASE
     Dosage: 35 MG/KG, QOW
     Route: 041
     Dates: start: 20040629, end: 20200918

REACTIONS (9)
  - Hyperkalaemia [Unknown]
  - Confusional state [Unknown]
  - Dehydration [Unknown]
  - Altered state of consciousness [Unknown]
  - Bradycardia [Unknown]
  - Cardiac disorder [Unknown]
  - Cardiac failure [Fatal]
  - General physical health deterioration [Unknown]
  - Pneumonia [Unknown]

NARRATIVE: CASE EVENT DATE: 20201001
